FAERS Safety Report 8401524-2 (Version None)
Quarter: 2012Q2

REPORT INFORMATION
  Report Type: 
  Country: None (occurrence: None)
  Receive Date: 20120530
  Receipt Date: 20120530
  Transmission Date: 20120825
  Serious: Yes (Other)
  Sender: FDA-Public Use
  Company Number: None

PATIENT
  Age: 71 Year
  Sex: Female
  Weight: 71.6683 kg

DRUGS (1)
  1. VALTURNA [Suspect]
     Dosage: 150MG-160MG ONCE DAILY PO
     Route: 048

REACTIONS (1)
  - ORTHOSTATIC HYPOTENSION [None]
